FAERS Safety Report 5332823-9 (Version None)
Quarter: 2007Q2

REPORT INFORMATION
  Report Type: 
  Country: None (occurrence: None)
  Receive Date: 20070521
  Receipt Date: 20070511
  Transmission Date: 20071010
  Serious: Yes (Hospitalization)
  Sender: FDA-Public Use
  Company Number: E2020-01226-SPO-FR

PATIENT
  Age: 84 Year
  Sex: Male

DRUGS (4)
  1. ARICEPT [Suspect]
     Indication: DEMENTIA ALZHEIMER'S TYPE
     Dosage: 5 MG, 1 IN 1 D, ORAL
     Route: 048
     Dates: start: 20050630, end: 20060630
  2. IMOVANE (ZOPICLONE) [Concomitant]
  3. RISPERDAL [Concomitant]
  4. L-THYROXINE (LEVOTHYROXINE SODIUM) [Concomitant]

REACTIONS (4)
  - BRADYCARDIA [None]
  - CARDIAC FAILURE [None]
  - HYPOTENSION [None]
  - HYPOTHYROIDISM [None]
